FAERS Safety Report 18044463 (Version 1)
Quarter: 2020Q3

REPORT INFORMATION
  Report Type: Other
  Country: CA (occurrence: CA)
  Receive Date: 20200720
  Receipt Date: 20200720
  Transmission Date: 20201103
  Serious: Yes (Hospitalization)
  Sender: FDA-Public Use
  Company Number: CA-BECTON DICKINSON-2020BDN00185

PATIENT
  Age: 15 Year
  Sex: Male
  Weight: 58 kg

DRUGS (9)
  1. DIMENHYDRINATE. [Concomitant]
     Active Substance: DIMENHYDRINATE
  2. POLYETHYLENE GLYCOL [Concomitant]
     Active Substance: POLYETHYLENE GLYCOLS
  3. RANITIDINE. [Concomitant]
     Active Substance: RANITIDINE
  4. ONDANSETRON [Concomitant]
     Active Substance: ONDANSETRON
  5. UNSPECIFIED PRODUCT (PAD) [Suspect]
     Active Substance: UNSPECIFIED INGREDIENT
  6. CHLORAPREP [Suspect]
     Active Substance: CHLORHEXIDINE GLUCONATE\ISOPROPYL ALCOHOL
     Indication: INFECTION PROPHYLAXIS
     Route: 061
  7. ACETAMINOPHEN. [Concomitant]
     Active Substance: ACETAMINOPHEN
  8. ACYCLOVIR. [Concomitant]
     Active Substance: ACYCLOVIR
  9. LORAZEPAM. [Concomitant]
     Active Substance: LORAZEPAM

REACTIONS (1)
  - Dermatitis contact [Unknown]
